FAERS Safety Report 8278599-7 (Version None)
Quarter: 2012Q2

REPORT INFORMATION
  Report Type: 
  Country: None (occurrence: None)
  Receive Date: 20120412
  Receipt Date: 20120407
  Transmission Date: 20120825
  Serious: Yes (Hospitalization)
  Sender: FDA-Public Use
  Company Number: US-BAYER-201021019NA

PATIENT
  Age: 23 Year
  Sex: Female
  Weight: 58.957 kg

DRUGS (8)
  1. YASMIN [Suspect]
     Dosage: UNK
     Route: 048
     Dates: start: 20040211, end: 20090617
  2. TYLENOL W/ CODEINE NO. 3 [Concomitant]
  3. PAMINE [Concomitant]
     Indication: IRRITABLE BOWEL SYNDROME
     Dosage: 5 MG, BID
     Dates: start: 20090901
  4. IBUPROFEN (ADVIL) [Concomitant]
     Indication: PAIN
     Dosage: OCCASIONALLY
     Dates: start: 20000101
  5. ASCORBIC ACID [Concomitant]
     Dosage: UNK
     Dates: start: 20000423
  6. DROSPIRENONE AND ETHINYL ESTRADIOL [Suspect]
     Dosage: UNK
     Dates: start: 20080731, end: 20090922
  7. METHSCOPOLAMINE BROMIDE [Concomitant]
     Dosage: 5 MG, UNK
  8. ZOFRAN [Concomitant]

REACTIONS (7)
  - EMOTIONAL DISTRESS [None]
  - PAIN [None]
  - CHOLECYSTITIS [None]
  - INJURY [None]
  - ANXIETY [None]
  - ANHEDONIA [None]
  - ABDOMINAL PAIN UPPER [None]
